FAERS Safety Report 5377789-0 (Version None)
Quarter: 2007Q3

REPORT INFORMATION
  Report Type: 
  Country: None (occurrence: None)
  Receive Date: 20070703
  Receipt Date: 20070622
  Transmission Date: 20080115
  Serious: Yes (Other)
  Sender: FDA-Public Use
  Company Number: US-PFIZER INC-2007052406

PATIENT
  Sex: Male
  Weight: 71.4 kg

DRUGS (7)
  1. CHANTIX [Suspect]
     Indication: EX-SMOKER
     Dates: start: 20061101, end: 20070401
  2. ALTACE [Concomitant]
  3. PLAVIX [Concomitant]
  4. TOPROL-XL [Concomitant]
  5. VYTORIN [Concomitant]
  6. NAPROSYN [Concomitant]
  7. TRAMADOL HCL [Concomitant]

REACTIONS (3)
  - LUNG NEOPLASM MALIGNANT [None]
  - MALAISE [None]
  - NAUSEA [None]
